FAERS Safety Report 19124506 (Version 2)
Quarter: 2022Q1

REPORT INFORMATION
  Report Type: Report from Study
  Country: AU (occurrence: AU)
  Receive Date: 20210413
  Receipt Date: 20220307
  Transmission Date: 20220423
  Serious: Yes (Hospitalization)
  Sender: FDA-Public Use
  Company Number: AU-BRISTOL-MYERS SQUIBB COMPANY-BMS-2021-031498

PATIENT
  Age: 73 Year
  Sex: Male
  Weight: 86 kg

DRUGS (19)
  1. LINRODOSTAT MESYLATE [Suspect]
     Active Substance: LINRODOSTAT MESYLATE
     Indication: Bladder cancer
     Dosage: 1 TAB
     Route: 065
     Dates: start: 20200820, end: 20200820
  2. PLACEBO [Suspect]
     Active Substance: UNSPECIFIED INGREDIENT
     Indication: Bladder cancer
     Dosage: 1 TAB
     Route: 065
     Dates: start: 20200820, end: 20200820
  3. LINRODOSTAT MESYLATE [Suspect]
     Active Substance: LINRODOSTAT MESYLATE
     Dosage: 2 TAB
     Route: 065
     Dates: start: 20210311, end: 20210311
  4. PLACEBO [Suspect]
     Active Substance: UNSPECIFIED INGREDIENT
     Dosage: 2 TAB
     Route: 065
     Dates: start: 20210311, end: 20210311
  5. NIVOLUMAB [Suspect]
     Active Substance: NIVOLUMAB
     Indication: Bladder cancer
     Dosage: 360 MILLIGRAM
     Route: 065
     Dates: start: 20200820, end: 20200820
  6. NIVOLUMAB [Suspect]
     Active Substance: NIVOLUMAB
     Dosage: 480 MILLIGRAM
     Route: 065
     Dates: start: 20210311, end: 20210311
  7. CISPLATIN [Suspect]
     Active Substance: CISPLATIN
     Indication: Bladder cancer
     Dosage: 105 MILLIGRAM
     Route: 065
     Dates: start: 20200820, end: 20200820
  8. CISPLATIN [Suspect]
     Active Substance: CISPLATIN
     Dosage: 78 MILLIGRAM
     Route: 065
     Dates: start: 20201022, end: 20201022
  9. GEMCITABINE HYDROCHLORIDE [Suspect]
     Active Substance: GEMCITABINE HYDROCHLORIDE
     Indication: Bladder cancer
     Dosage: 2000 MILLIGRAM
     Route: 065
     Dates: start: 20200820, end: 20200820
  10. GEMCITABINE HYDROCHLORIDE [Suspect]
     Active Substance: GEMCITABINE HYDROCHLORIDE
     Dosage: 2000 MILLIGRAM
     Route: 065
     Dates: start: 20201029, end: 20201029
  11. GLYCOSAMINOGLYCANS [Concomitant]
     Active Substance: GLYCOSAMINOGLYCANS
     Indication: Product used for unknown indication
     Dosage: 1 DOSAGE FORM
     Route: 061
     Dates: start: 20200901
  12. IBUPROFEN [Concomitant]
     Active Substance: IBUPROFEN
     Indication: Product used for unknown indication
     Dosage: 400 MILLIGRAM
     Route: 048
     Dates: start: 20200901
  13. TEMAZEPAM [Concomitant]
     Active Substance: TEMAZEPAM
     Indication: Product used for unknown indication
     Dosage: 10 MILLIGRAM
     Route: 048
     Dates: start: 20200828
  14. METOCLOPRAMIDE [Concomitant]
     Active Substance: METOCLOPRAMIDE
     Indication: Product used for unknown indication
     Dosage: 10 MILLIGRAM
     Route: 048
     Dates: start: 20200911
  15. PANTOPRAZOLE [Concomitant]
     Active Substance: PANTOPRAZOLE
     Indication: Product used for unknown indication
     Dosage: 20 MILLIGRAM
     Route: 048
     Dates: start: 20200917
  16. NAPROSYN [Concomitant]
     Active Substance: NAPROXEN
     Indication: Product used for unknown indication
     Dosage: 500 MILLIGRAM
     Route: 048
     Dates: start: 20210307
  17. OXYCODONE HYDROCHLORIDE [Concomitant]
     Active Substance: OXYCODONE HYDROCHLORIDE
     Indication: Product used for unknown indication
     Dosage: 5 MILLIGRAM
     Route: 048
     Dates: start: 20210307
  18. VITAMINS [Concomitant]
     Active Substance: VITAMINS
     Indication: Product used for unknown indication
     Dosage: 1 DOSAGE FORM
     Route: 048
     Dates: start: 20210207
  19. ACETAMINOPHEN [Concomitant]
     Active Substance: ACETAMINOPHEN
     Indication: Product used for unknown indication
     Dosage: 1 GRAM
     Route: 048
     Dates: start: 20201223

REACTIONS (1)
  - Enteritis [Recovered/Resolved]

NARRATIVE: CASE EVENT DATE: 20210327
